FAERS Safety Report 6221356-3 (Version None)
Quarter: 2009Q2

REPORT INFORMATION
  Report Type: 
  Country: None (occurrence: None)
  Receive Date: 20090610
  Receipt Date: 20090602
  Transmission Date: 20091009
  Serious: Yes (Death, Hospitalization)
  Sender: FDA-Public Use
  Company Number: FR-AVENTIS-200912030FR

PATIENT
  Age: 71 Year
  Sex: Female

DRUGS (14)
  1. LASILIX                            /00032601/ [Suspect]
     Indication: DRUG USE FOR UNKNOWN INDICATION
     Route: 048
  2. GARDENALE                          /00023202/ [Suspect]
     Indication: DRUG USE FOR UNKNOWN INDICATION
     Route: 048
  3. IMOVANE [Suspect]
     Indication: DRUG USE FOR UNKNOWN INDICATION
     Route: 048
  4. KARDEGIC                           /00002703/ [Suspect]
     Indication: DRUG USE FOR UNKNOWN INDICATION
     Route: 048
  5. MEDIATOR [Suspect]
     Route: 048
     Dates: start: 19920101, end: 20070101
  6. LAROXYL [Suspect]
     Indication: DRUG USE FOR UNKNOWN INDICATION
     Route: 048
  7. DIAMICRON [Suspect]
     Indication: DRUG USE FOR UNKNOWN INDICATION
     Route: 048
  8. GLUCOPHAGE [Suspect]
     Indication: DRUG USE FOR UNKNOWN INDICATION
     Route: 048
  9. DUPHALAC [Suspect]
     Indication: DRUG USE FOR UNKNOWN INDICATION
     Route: 048
  10. ALLOPURINOL [Suspect]
     Indication: DRUG USE FOR UNKNOWN INDICATION
     Route: 048
  11. BEFIZAL [Suspect]
     Indication: DRUG USE FOR UNKNOWN INDICATION
     Route: 048
  12. NEXIUM [Suspect]
     Indication: DRUG USE FOR UNKNOWN INDICATION
  13. NOZINAN                            /00038601/ [Suspect]
     Indication: DRUG USE FOR UNKNOWN INDICATION
  14. TEMESTA                            /00273201/ [Suspect]
     Indication: DRUG USE FOR UNKNOWN INDICATION
     Route: 048

REACTIONS (1)
  - PULMONARY ARTERIAL HYPERTENSION [None]
